FAERS Safety Report 7175968-3 (Version None)
Quarter: 2010Q4

REPORT INFORMATION
  Report Type: 
  Country: None (occurrence: None)
  Receive Date: 20101220
  Receipt Date: 20101208
  Transmission Date: 20110411
  Serious: Yes (Hospitalization, Other)
  Sender: FDA-Public Use
  Company Number: US-BIOGENIDEC-2010BI043548

PATIENT
  Age: 60 Year
  Sex: Female

DRUGS (1)
  1. AVONEX [Suspect]
     Indication: MULTIPLE SCLEROSIS
     Route: 030
     Dates: start: 20010620

REACTIONS (5)
  - FALL [None]
  - LIMB CRUSHING INJURY [None]
  - MUSCULOSKELETAL DISORDER [None]
  - PNEUMONIA PRIMARY ATYPICAL [None]
  - ROAD TRAFFIC ACCIDENT [None]
